FAERS Safety Report 21218113 (Version 11)
Quarter: 2025Q4

REPORT INFORMATION
  Report Type: Report from Study
  Country: TW (occurrence: TW)
  Receive Date: 20220816
  Receipt Date: 20251106
  Transmission Date: 20260117
  Serious: Yes (Hospitalization, Other)
  Sender: TAKEDA
  Company Number: TW-TAKEDA-2022TUS028520

PATIENT
  Age: 53 Year
  Sex: Male

DRUGS (3)
  1. RURIOCTOCOG ALFA PEGOL [Suspect]
     Active Substance: RURIOCTOCOG ALFA PEGOL
     Indication: Factor VIII deficiency
     Dosage: 4000 INTERNATIONAL UNIT, 2/WEEK
     Dates: start: 20220427
  2. RURIOCTOCOG ALFA PEGOL [Suspect]
     Active Substance: RURIOCTOCOG ALFA PEGOL
     Indication: Haemophilia
     Dosage: UNK UNK, 2/WEEK
  3. RURIOCTOCOG ALFA PEGOL [Suspect]
     Active Substance: RURIOCTOCOG ALFA PEGOL
     Dosage: 4000 INTERNATIONAL UNIT, 2/WEEK

REACTIONS (15)
  - Glaucoma [Recovered/Resolved]
  - Cataract [Recovered/Resolved]
  - Haemarthrosis [Recovered/Resolved]
  - Hepatic neoplasm [Unknown]
  - Joint swelling [Not Recovered/Not Resolved]
  - Fall [Not Recovered/Not Resolved]
  - Cellulitis [Recovering/Resolving]
  - Lipoma [Recovered/Resolved]
  - Myalgia [Not Recovered/Not Resolved]
  - Exostosis [Not Recovered/Not Resolved]
  - Inflammation [Not Recovered/Not Resolved]
  - Musculoskeletal stiffness [Not Recovered/Not Resolved]
  - Pain [Not Recovered/Not Resolved]
  - Tinea pedis [Not Recovered/Not Resolved]
  - Intraocular pressure increased [Not Recovered/Not Resolved]

NARRATIVE: CASE EVENT DATE: 20220427
